FAERS Safety Report 11864956 (Version 15)
Quarter: 2021Q2

REPORT INFORMATION
  Report Type: Spontaneous
  Country: US (occurrence: US)
  Receive Date: 20151223
  Receipt Date: 20210405
  Transmission Date: 20210716
  Serious: Yes (Hospitalization)
  Sender: FDA-Public Use
  Company Number: US-PFIZER INC-2015459918

PATIENT
  Age: 61 Year
  Sex: Female
  Weight: 81.19 kg

DRUGS (22)
  1. SOMAVERT [Suspect]
     Active Substance: PEGVISOMANT
     Indication: PITUITARY TUMOUR
     Dosage: 20 MG, DAILY
     Route: 058
     Dates: start: 20150807, end: 20180129
  2. PROTONIX [Concomitant]
     Active Substance: PANTOPRAZOLE SODIUM
     Indication: GASTROOESOPHAGEAL REFLUX DISEASE
     Dosage: 40 MG, ONCE A DAY
     Route: 048
     Dates: start: 2014
  3. ALBUTEROL. [Concomitant]
     Active Substance: ALBUTEROL
     Dosage: UNK (2.5 MG/3 ML)
     Dates: start: 2014
  4. IPRATROPIUM BROMIDE W/SALBUTAMOL SULFATE [Concomitant]
     Active Substance: ALBUTEROL SULFATE\IPRATROPIUM BROMIDE
     Indication: RESPIRATORY DISORDER
     Dosage: UNK (IPRATROPIUM BROMIDE: 0.5 MG/SALBUTAMOL SULFATE: 3 MG)
  5. SOMAVERT [Suspect]
     Active Substance: PEGVISOMANT
     Dosage: 20 MG, ONCE A DAY
     Route: 058
     Dates: start: 20190110
  6. LISINOPRIL. [Concomitant]
     Active Substance: LISINOPRIL
     Indication: HYPERTENSION
     Dosage: 10 MG, ONCE A DAY
     Route: 048
     Dates: start: 2012
  7. PLAVIX [Concomitant]
     Active Substance: CLOPIDOGREL BISULFATE
     Indication: BLOOD PRESSURE ABNORMAL
     Dosage: 75 MG, ONCE A DAY
     Route: 048
     Dates: start: 2012
  8. NORVASC [Concomitant]
     Active Substance: AMLODIPINE BESYLATE
     Dosage: 5 MG, ONCE A DAY
     Route: 048
     Dates: start: 201506
  9. COREG [Concomitant]
     Active Substance: CARVEDILOL
     Indication: HYPERTENSION
     Dosage: 6.25 MG (2 TABLETS OF 3.125 MG), TWICE A DAY
     Route: 048
     Dates: start: 2014
  10. LISINOPRIL. [Concomitant]
     Active Substance: LISINOPRIL
     Dosage: 20 MG, UNK
  11. PLAVIX [Concomitant]
     Active Substance: CLOPIDOGREL BISULFATE
     Indication: ANTICOAGULANT THERAPY
  12. OXYGEN. [Concomitant]
     Active Substance: OXYGEN
     Indication: CHRONIC OBSTRUCTIVE PULMONARY DISEASE
     Dosage: 2 L/M, AT NIGHT
     Dates: start: 2007
  13. SOMAVERT [Suspect]
     Active Substance: PEGVISOMANT
     Dosage: 20 MG, UNK
     Dates: start: 20190603
  14. SYMBICORT [Concomitant]
     Active Substance: BUDESONIDE\FORMOTEROL FUMARATE DIHYDRATE
     Dosage: UNK, TWICE A DAY
  15. SOMAVERT [Suspect]
     Active Substance: PEGVISOMANT
     Dosage: 20 MG, UNK
     Route: 058
     Dates: start: 20171228
  16. SOMAVERT [Suspect]
     Active Substance: PEGVISOMANT
     Dosage: 20 MG, DAILY
     Dates: start: 20191130
  17. SOMAVERT [Suspect]
     Active Substance: PEGVISOMANT
     Indication: ACROMEGALY
     Dosage: 15 MG, DAILY
     Route: 058
     Dates: start: 201509, end: 201510
  18. SOMAVERT [Suspect]
     Active Substance: PEGVISOMANT
     Dosage: 20 MG, UNK
     Route: 058
     Dates: start: 20180212
  19. SOMAVERT [Suspect]
     Active Substance: PEGVISOMANT
     Dosage: 20 MG, DAILY
     Dates: start: 20101027
  20. PROTONIX [Concomitant]
     Active Substance: PANTOPRAZOLE SODIUM
     Indication: HIATUS HERNIA
  21. SYMBICORT [Concomitant]
     Active Substance: BUDESONIDE\FORMOTEROL FUMARATE DIHYDRATE
     Indication: CHRONIC OBSTRUCTIVE PULMONARY DISEASE
     Dosage: UNK (160 MCG/4.5 MCG)
     Route: 055
     Dates: start: 2013
  22. ASPIRIN. [Concomitant]
     Active Substance: ASPIRIN
     Dosage: 81 MG, ONCE A DAY
     Route: 048
     Dates: start: 201506

REACTIONS (20)
  - Scleral hyperaemia [Not Recovered/Not Resolved]
  - Influenza [Unknown]
  - Hot flush [Unknown]
  - Blood growth hormone increased [Unknown]
  - Hyperhidrosis [Not Recovered/Not Resolved]
  - Eye irritation [Not Recovered/Not Resolved]
  - Hypotension [Unknown]
  - Seasonal allergy [Unknown]
  - Headache [Not Recovered/Not Resolved]
  - Heart rate increased [Not Recovered/Not Resolved]
  - Product dose omission issue [Unknown]
  - Gastrointestinal disorder [Unknown]
  - Therapeutic response unexpected [Unknown]
  - Gastric disorder [Not Recovered/Not Resolved]
  - Eating disorder [Unknown]
  - Night sweats [Unknown]
  - Vomiting [Unknown]
  - Labile blood pressure [Unknown]
  - Weight decreased [Unknown]
  - Fatigue [Unknown]

NARRATIVE: CASE EVENT DATE: 20151130
